FAERS Safety Report 21339160 (Version 1)
Quarter: 2022Q3

REPORT INFORMATION
  Report Type: Spontaneous
  Country: GB (occurrence: GB)
  Receive Date: 20220915
  Receipt Date: 20220915
  Transmission Date: 20221026
  Serious: Yes (Other)
  Sender: FDA-Public Use
  Company Number: None

PATIENT
  Age: 47 Year
  Sex: Female

DRUGS (2)
  1. SULFASALAZINE [Suspect]
     Active Substance: SULFASALAZINE
     Indication: Psoriatic arthropathy
     Dosage: UNK
     Dates: end: 20090601
  2. COCODAMOL [Concomitant]
     Active Substance: ACETAMINOPHEN\CODEINE PHOSPHATE
     Indication: Arthralgia

REACTIONS (9)
  - Psychotic disorder [Recovered/Resolved]
  - Insomnia [Recovered/Resolved]
  - Nightmare [Recovered/Resolved]
  - Depression [Recovered/Resolved]
  - Hallucination, auditory [Recovered/Resolved]
  - Paranoia [Recovered/Resolved]
  - Anxiety [Unknown]
  - Panic attack [Unknown]
  - Post-traumatic stress disorder [Unknown]

NARRATIVE: CASE EVENT DATE: 20090301
